FAERS Safety Report 8615242-9 (Version None)
Quarter: 2012Q3

REPORT INFORMATION
  Report Type: 
  Country: None (occurrence: None)
  Receive Date: 20120823
  Receipt Date: 20120822
  Transmission Date: 20120928
  Serious: No
  Sender: FDA-Public Use
  Company Number: US-PFIZER INC-2012206447

PATIENT
  Age: 66 Year
  Sex: Female
  Weight: 68.027 kg

DRUGS (3)
  1. LEVOTHYROXINE [Concomitant]
     Dosage: UNK
  2. LYRICA [Suspect]
     Indication: FIBROMYALGIA
     Dosage: 50 MG, 2X/DAY
     Route: 048
     Dates: start: 20120813
  3. SIMVASTATIN [Concomitant]
     Dosage: UNK

REACTIONS (1)
  - DRY MOUTH [None]
